FAERS Safety Report 21512880 (Version 1)
Quarter: 2022Q4

REPORT INFORMATION
  Report Type: Spontaneous
  Country: US (occurrence: None)
  Receive Date: 20221026
  Receipt Date: 20221026
  Transmission Date: 20230113
  Serious: Yes (Death)
  Sender: FDA-Public Use
  Company Number: None

PATIENT
  Age: 60 Year
  Sex: Female
  Weight: 84 kg

DRUGS (1)
  1. BEVACIZUMAB [Suspect]
     Active Substance: BEVACIZUMAB

REACTIONS (7)
  - Asthenia [None]
  - Abdominal pain [None]
  - Sepsis [None]
  - Diverticular perforation [None]
  - Abscess [None]
  - Hospice care [None]
  - Herpes zoster [None]

NARRATIVE: CASE EVENT DATE: 20220923
